FAERS Safety Report 25510599 (Version 1)
Quarter: 2025Q3

REPORT INFORMATION
  Report Type: Spontaneous
  Country: CN (occurrence: CN)
  Receive Date: 20250703
  Receipt Date: 20250703
  Transmission Date: 20251020
  Serious: Yes (Death, Other)
  Sender: INNOVIVA
  Company Number: CN-INNOVIVA SPECIALTY THERAPEUTICS-2025-ISTX-000109

PATIENT

DRUGS (3)
  1. XACDURO [Suspect]
     Active Substance: DURLOBACTAM SODIUM\SULBACTAM SODIUM
     Indication: Pneumonia acinetobacter
     Dosage: 1 PACKAGE, EVERY 6 HOURS (Q6H)
     Route: 041
     Dates: start: 20250510
  2. Globulin [Concomitant]
     Indication: Product used for unknown indication
  3. ALBUMIN HUMAN [Concomitant]
     Active Substance: ALBUMIN HUMAN
     Indication: Product used for unknown indication

REACTIONS (2)
  - Pneumonia [Fatal]
  - Drug ineffective [Unknown]
